FAERS Safety Report 15762319 (Version 3)
Quarter: 2019Q1

REPORT INFORMATION
  Report Type: Spontaneous
  Country: RS (occurrence: RS)
  Receive Date: 20181226
  Receipt Date: 20190122
  Transmission Date: 20190417
  Serious: Yes (Hospitalization, Other)
  Sender: FDA-Public Use
  Company Number: RS-JNJFOC-20181231048

PATIENT
  Age: 63 Year
  Sex: Male

DRUGS (6)
  1. CARDIOPIRIN [Concomitant]
     Active Substance: ASPIRIN
     Route: 065
  2. XARELTO [Suspect]
     Active Substance: RIVAROXABAN
     Indication: CARDIAC VENTRICULAR THROMBOSIS
     Route: 048
     Dates: start: 20181112, end: 20181220
  3. DIGOXIN. [Concomitant]
     Active Substance: DIGOXIN
     Indication: CARDIOMYOPATHY
     Route: 065
  4. XARELTO [Suspect]
     Active Substance: RIVAROXABAN
     Indication: CARDIOMYOPATHY
     Route: 048
     Dates: start: 20181112, end: 20181220
  5. EDEMID [Concomitant]
     Active Substance: FUROSEMIDE
     Indication: CARDIOMYOPATHY
     Route: 065
  6. INSPRA                             /01362602/ [Concomitant]
     Active Substance: MONTELUKAST SODIUM
     Indication: CARDIOMYOPATHY
     Route: 048

REACTIONS (5)
  - Jaundice [Recovering/Resolving]
  - Product use in unapproved indication [Unknown]
  - Hyperbilirubinaemia [Recovering/Resolving]
  - Off label use [Unknown]
  - Abdominal pain [Recovering/Resolving]

NARRATIVE: CASE EVENT DATE: 201812
